FAERS Safety Report 16462570 (Version 2)
Quarter: 2020Q1

REPORT INFORMATION
  Report Type: Spontaneous
  Country: SE (occurrence: SE)
  Receive Date: 20190621
  Receipt Date: 20200327
  Transmission Date: 20200409
  Serious: Yes (Life-Threatening, Hospitalization)
  Sender: FDA-Public Use
  Company Number: SE-STRIDES ARCOLAB LIMITED-2019SP005209

PATIENT
  Age: 26 Year
  Sex: Female

DRUGS (1)
  1. AMLODIPINE [Suspect]
     Active Substance: AMLODIPINE BESYLATE
     Indication: PRODUCT USED FOR UNKNOWN INDICATION
     Dosage: 0.5-1 G
     Route: 048

REACTIONS (13)
  - Tachycardia [Recovered/Resolved]
  - Myocardial depression [Recovered/Resolved]
  - Anuria [Recovered/Resolved]
  - Suicide attempt [Unknown]
  - Prescription drug used without a prescription [Unknown]
  - Haemodynamic instability [Recovered/Resolved]
  - Non-cardiogenic pulmonary oedema [Recovered/Resolved]
  - Overdose [Unknown]
  - Respiratory failure [Recovered/Resolved]
  - Pleural effusion [Recovered/Resolved]
  - Dyspnoea [Recovered/Resolved]
  - Hypotension [Recovered/Resolved]
  - Toxicity to various agents [Unknown]
